FAERS Safety Report 20637127 (Version 4)
Quarter: 2022Q3

REPORT INFORMATION
  Report Type: Spontaneous
  Country: US (occurrence: US)
  Receive Date: 20220325
  Receipt Date: 20220720
  Transmission Date: 20221026
  Serious: Yes (Other)
  Sender: FDA-Public Use
  Company Number: US-PFIZER INC-202200411642

PATIENT
  Age: 73 Year
  Sex: Female

DRUGS (1)
  1. IBRANCE [Suspect]
     Active Substance: PALBOCICLIB
     Dosage: 100 MG
     Dates: start: 20220301

REACTIONS (15)
  - Haemoglobin decreased [Unknown]
  - White blood cell count decreased [Not Recovered/Not Resolved]
  - Nausea [Not Recovered/Not Resolved]
  - Abdominal discomfort [Unknown]
  - Fatigue [Not Recovered/Not Resolved]
  - Hot flush [Not Recovered/Not Resolved]
  - Decreased appetite [Recovering/Resolving]
  - Rash pruritic [Recovering/Resolving]
  - Haemorrhoidal haemorrhage [Unknown]
  - Decreased appetite [Unknown]
  - Abdominal discomfort [Unknown]
  - Dyspepsia [Unknown]
  - Hyperhidrosis [Not Recovered/Not Resolved]
  - Dizziness [Not Recovered/Not Resolved]
  - Nervousness [Not Recovered/Not Resolved]
